FAERS Safety Report 6995868-9 (Version None)
Quarter: 2010Q3

REPORT INFORMATION
  Report Type: 
  Country: None (occurrence: None)
  Receive Date: 20100918
  Receipt Date: 20081218
  Transmission Date: 20110219
  Serious: No
  Sender: FDA-Public Use
  Company Number: US-WYE-H06936608

PATIENT
  Sex: Female
  Weight: 68.1 kg

DRUGS (8)
  1. EFFEXOR XR [Suspect]
     Indication: DEPRESSION
     Route: 048
     Dates: start: 20000101
  2. MORPHINE SULFATE [Concomitant]
  3. NORTRIPTYLINE HCL [Concomitant]
  4. ADDERALL 10 [Concomitant]
  5. FIORICET [Concomitant]
  6. ZYPREXA [Concomitant]
  7. OXYCONTIN [Concomitant]
  8. KLONOPIN [Concomitant]

REACTIONS (1)
  - DRUG SCREEN POSITIVE [None]
